FAERS Safety Report 4465203-9 (Version None)
Quarter: 2004Q4

REPORT INFORMATION
  Report Type: 
  Country: None (occurrence: None)
  Receive Date: 20041004
  Receipt Date: 20040924
  Transmission Date: 20050328
  Serious: Yes (Hospitalization)
  Sender: FDA-Public Use
  Company Number: DE-ABBOTT-04P-062-0275039-00

PATIENT
  Sex: Male
  Weight: 79 kg

DRUGS (6)
  1. ISOPTIN [Suspect]
     Indication: ARRHYTHMIA
     Route: 048
     Dates: start: 19890101
  2. ACETYLSALICYLIC ACID [Suspect]
     Indication: CORONARY ARTERY DISEASE
     Route: 048
     Dates: start: 19890101, end: 20040328
  3. ENALAPRIL MALEATE [Concomitant]
     Indication: HYPERTENSION
     Route: 048
     Dates: start: 19940101
  4. BERITHYROX 50 [Concomitant]
     Indication: GOITRE
     Route: 048
     Dates: start: 19940101
  5. THEOPHYLLINE [Concomitant]
     Indication: BRONCHITIS CHRONIC
     Route: 048
  6. GLUCOPHAGE [Concomitant]
     Indication: DIABETES MELLITUS
     Route: 048
     Dates: start: 19940101

REACTIONS (1)
  - GASTROINTESTINAL HAEMORRHAGE [None]
